FAERS Safety Report 5110303-3 (Version None)
Quarter: 2006Q3

REPORT INFORMATION
  Report Type: 
  Country: None (occurrence: None)
  Receive Date: 20060921
  Receipt Date: 20060914
  Transmission Date: 20061208
  Serious: Yes (Hospitalization)
  Sender: FDA-Public Use
  Company Number: CH-AVENTIS-200619656GDDC

PATIENT
  Age: 61 Year
  Sex: Female

DRUGS (11)
  1. LANTUS [Suspect]
     Route: 058
     Dates: end: 20060520
  2. ACTRAPID INSULIN NOVO [Suspect]
     Route: 058
     Dates: end: 20060520
  3. DILATREND [Suspect]
     Route: 048
  4. TOREM [Concomitant]
     Route: 048
  5. ENATEC [Concomitant]
     Dosage: DOSE: 1 DF DOSAGE FORM
     Route: 048
  6. CARDURA CR [Concomitant]
     Route: 048
  7. ADALAT [Concomitant]
     Dosage: DOSE: 1 DF DOSAGE FORM
     Route: 048
  8. PLAVIX [Concomitant]
     Dosage: DOSE: 1 DF DOSAGE FORM
     Route: 048
  9. SELIPRAN [Concomitant]
     Dosage: DOSE: 1 DF DOSAGE FORM
     Route: 048
  10. CITALOPRAM HYDROBROMIDE [Concomitant]
     Dosage: DOSE: 1 DF DOSAGE FORM
     Route: 048
  11. SINTROM [Concomitant]
     Route: 048

REACTIONS (3)
  - BRADYCARDIA [None]
  - HYPOGLYCAEMIC COMA [None]
  - HYPOTHERMIA [None]
